FAERS Safety Report 5959700-4 (Version None)
Quarter: 2008Q4

REPORT INFORMATION
  Report Type: 
  Country: None (occurrence: None)
  Receive Date: 20081119
  Receipt Date: 20081119
  Transmission Date: 20090506
  Serious: Yes (Hospitalization)
  Sender: FDA-Public Use
  Company Number: None

PATIENT
  Age: 24 Year
  Sex: Female
  Weight: 94 kg

DRUGS (6)
  1. ACETAMINOPHEN [Suspect]
     Indication: SUICIDE ATTEMPT
     Dosage: 15,000 MG APAP ONCE
     Dates: start: 20080531
  2. DIPHENHYDRAMINE HCL [Suspect]
     Dosage: 750MG DIPHENHYDRAMINE ONCE
  3. METOPROLOL TARTRATE [Concomitant]
  4. MORPHINE SULFATE [Concomitant]
  5. LEVOTHYROXINE SODIUM [Concomitant]
  6. BACTRIM [Concomitant]

REACTIONS (2)
  - INCORRECT DOSE ADMINISTERED [None]
  - VOMITING [None]
